FAERS Safety Report 5869665-1 (Version None)
Quarter: 2008Q3

REPORT INFORMATION
  Report Type: 
  Country: None (occurrence: None)
  Receive Date: 20080828
  Receipt Date: 20080815
  Transmission Date: 20090109
  Serious: Yes (Hospitalization)
  Sender: FDA-Public Use
  Company Number: 230233J08BRA

PATIENT
  Age: 65 Year
  Sex: Female

DRUGS (1)
  1. REBIF [Suspect]
     Indication: MULTIPLE SCLEROSIS
     Dosage: 3 IN 1 WEEKS
     Dates: start: 20011201

REACTIONS (6)
  - ABDOMINAL HERNIA [None]
  - BLOOD PRESSURE FLUCTUATION [None]
  - FATIGUE [None]
  - HYPOTENSION [None]
  - LUNG DISORDER [None]
  - MALAISE [None]
